FAERS Safety Report 5068549-9 (Version None)
Quarter: 2006Q3

REPORT INFORMATION
  Report Type: 
  Country: None (occurrence: None)
  Receive Date: 20060802
  Receipt Date: 20051118
  Transmission Date: 20061208
  Serious: Yes (Hospitalization)
  Sender: FDA-Public Use
  Company Number: US-BRISTOL-MYERS SQUIBB COMPANY-13188040

PATIENT
  Age: 27 Year
  Sex: Male
  Weight: 91 kg

DRUGS (1)
  1. COUMADIN [Suspect]
     Indication: AORTIC STENOSIS
     Dates: start: 20030822, end: 20051026

REACTIONS (2)
  - CEREBRAL HAEMORRHAGE [None]
  - CEREBROVASCULAR ACCIDENT [None]
